FAERS Safety Report 6897728-0 (Version None)
Quarter: 2010Q3

REPORT INFORMATION
  Report Type: 
  Country: None (occurrence: None)
  Receive Date: 20100802
  Receipt Date: 20070724
  Transmission Date: 20110219
  Serious: Yes (Other)
  Sender: FDA-Public Use
  Company Number: US-PFIZER INC-2007045498

PATIENT
  Sex: Female
  Weight: 52.6 kg

DRUGS (6)
  1. LYRICA [Suspect]
     Indication: POLYNEUROPATHY
  2. VASOTEC [Concomitant]
  3. TOPROL-XL [Concomitant]
  4. MEVACOR [Concomitant]
  5. BENICAR [Concomitant]
  6. LEVOXYL [Concomitant]

REACTIONS (3)
  - GLUCOSE TOLERANCE TEST ABNORMAL [None]
  - OEDEMA PERIPHERAL [None]
  - WEIGHT INCREASED [None]
